FAERS Safety Report 4747869-9 (Version None)
Quarter: 2005Q3

REPORT INFORMATION
  Report Type: 
  Country: None (occurrence: None)
  Receive Date: 20050818
  Receipt Date: 20050617
  Transmission Date: 20060218
  Serious: Yes (Hospitalization)
  Sender: FDA-Public Use
  Company Number: PL-ROCHE-408025

PATIENT
  Age: 50 Year
  Sex: Female

DRUGS (8)
  1. PEG-INTERFERON ALFA 2A (RO 25-8310) [Suspect]
     Route: 058
     Dates: start: 20041220, end: 20050530
  2. PEG-INTERFERON ALFA 2A (RO 25-8310) [Suspect]
     Route: 058
     Dates: start: 20050531
  3. RIBAVIRIN [Suspect]
     Route: 048
     Dates: start: 20050425, end: 20050523
  4. RIBAVIRIN [Suspect]
     Route: 048
     Dates: start: 20050605
  5. PARACETAMOL [Concomitant]
     Route: 048
     Dates: start: 20050207
  6. DICLOFENAC SODIUM [Concomitant]
     Route: 054
     Dates: start: 20050207
  7. FERROUS SULFATE TAB [Concomitant]
     Indication: FATIGUE
     Route: 048
     Dates: start: 20050425
  8. FOLIC ACID [Concomitant]
     Indication: FATIGUE
     Route: 048
     Dates: start: 20050425

REACTIONS (8)
  - ANAEMIA [None]
  - BRONCHITIS [None]
  - DIARRHOEA [None]
  - HYPOKALAEMIA [None]
  - LEUKOPENIA [None]
  - NAUSEA [None]
  - NEUTROPENIA [None]
  - VOMITING [None]
